FAERS Safety Report 8779482 (Version 1)
Quarter: 2012Q4

REPORT INFORMATION
  Report Type: 
  Country: US (occurrence: US)
  Receive Date: 20120912
  Receipt Date: 20120912
  Transmission Date: 20130627
  Serious: Yes (Hospitalization, Other)
  Sender: FDA-Public Use
  Company Number: US-ROCHE-1117312

PATIENT
  Age: 65 Year
  Sex: Female

DRUGS (3)
  1. ORLISTAT [Suspect]
     Indication: OBESITY
     Route: 065
  2. LEVOTHYROXINE [Interacting]
     Indication: HYPOTHYROIDISM
     Dosage: Every day
     Route: 065
  3. LEVOTHYROXINE [Interacting]
     Dosage: Every day
     Route: 065

REACTIONS (2)
  - Syncope [Recovered/Resolved]
  - Drug interaction [Unknown]
